FAERS Safety Report 6082100-6 (Version None)
Quarter: 2009Q1

REPORT INFORMATION
  Report Type: 
  Country: None (occurrence: None)
  Receive Date: 20090218
  Receipt Date: 20081117
  Transmission Date: 20090719
  Serious: No
  Sender: FDA-Public Use
  Company Number: US-BRISTOL-MYERS SQUIBB COMPANY-14408520

PATIENT
  Age: 58 Year
  Sex: Male
  Weight: 91 kg

DRUGS (6)
  1. GLUCOPHAGE [Suspect]
     Indication: DIABETES MELLITUS
  2. PLAVIX [Concomitant]
  3. AMARYL [Concomitant]
  4. ALTACE [Concomitant]
  5. PINDOLOL [Concomitant]
  6. ASPIRIN [Concomitant]

REACTIONS (1)
  - DIABETES MELLITUS INADEQUATE CONTROL [None]
